FAERS Safety Report 5441226-8 (Version None)
Quarter: 2007Q3

REPORT INFORMATION
  Report Type: 
  Country: None (occurrence: None)
  Receive Date: 20070901
  Receipt Date: 20070820
  Transmission Date: 20080115
  Serious: Yes (Other)
  Sender: FDA-Public Use
  Company Number: US-PFIZER INC-2007070675

PATIENT
  Sex: Female
  Weight: 72.6 kg

DRUGS (6)
  1. CHANTIX [Suspect]
     Indication: SMOKING CESSATION THERAPY
  2. PLAVIX [Concomitant]
  3. ZOCOR [Concomitant]
  4. METOPROLOL SUCCINATE [Concomitant]
  5. GLIPIZIDE [Concomitant]
  6. GLUCOPHAGE [Concomitant]

REACTIONS (1)
  - DAYDREAMING [None]
